FAERS Safety Report 6380470-2 (Version None)
Quarter: 2009Q3

REPORT INFORMATION
  Report Type: 
  Country: None (occurrence: None)
  Receive Date: 20090924
  Receipt Date: 20090914
  Transmission Date: 20100115
  Serious: Yes (Death, Hospitalization)
  Sender: FDA-Public Use
  Company Number: 2008AL009849

PATIENT
  Age: 70 Year
  Sex: Male

DRUGS (5)
  1. DIGOXIN [Suspect]
     Indication: SUPRAVENTRICULAR TACHYCARDIA
     Dosage: 0.25MG, PO
     Route: 048
     Dates: start: 20060101
  2. COUMADIN [Concomitant]
  3. VIOXX [Concomitant]
  4. AMOXICILLIN [Concomitant]
  5. TOBRADEX [Concomitant]

REACTIONS (11)
  - ASTHENIA [None]
  - CIRCULATORY COLLAPSE [None]
  - DECREASED APPETITE [None]
  - DIZZINESS [None]
  - ECONOMIC PROBLEM [None]
  - EMOTIONAL DISTRESS [None]
  - FALL [None]
  - INFLUENZA LIKE ILLNESS [None]
  - INJURY [None]
  - NAUSEA [None]
  - SURGERY [None]
